FAERS Safety Report 14425262 (Version 2)
Quarter: 2019Q4

REPORT INFORMATION
  Report Type: Spontaneous
  Country: GB (occurrence: GB)
  Receive Date: 20180123
  Receipt Date: 20191119
  Transmission Date: 20200122
  Serious: Yes (Other)
  Sender: FDA-Public Use
  Company Number: GB-TEVA-2018-GB-848749

PATIENT
  Age: 62 Year
  Sex: Female
  Weight: 73 kg

DRUGS (14)
  1. COCODAMOL [Concomitant]
     Active Substance: ACETAMINOPHEN\CODEINE PHOSPHATE
     Dosage: TAKE 1 OR 2 UPTO 4 TIMES/DAY
     Dates: start: 20171031, end: 20171107
  2. EZETIMIBE. [Concomitant]
     Active Substance: EZETIMIBE
     Dates: start: 20170530
  3. DICLOFENAC DIETHYLAMINE [Concomitant]
     Active Substance: DICLOFENAC DIETHYLAMINE
     Dates: start: 20171031, end: 20171130
  4. DESUNIN [Concomitant]
     Active Substance: CHOLECALCIFEROL
     Dates: start: 20170317
  5. ATORVASTATIN [Suspect]
     Active Substance: ATORVASTATIN
     Route: 065
     Dates: start: 20171031
  6. PANTOPRAZOLE [Concomitant]
     Active Substance: PANTOPRAZOLE
     Dates: start: 20170530
  7. PRAVASTATIN. [Concomitant]
     Active Substance: PRAVASTATIN
     Dosage: NIGHT
     Dates: start: 20171205
  8. SYSTANE (HYPROMELLOSE 2910 (4000 MPA.S)) [Concomitant]
     Active Substance: HYPROMELLOSE 2910 (4000 MPA.S)
     Dosage: USE AS DIRECTED
     Dates: start: 20170216
  9. PARACETAMOL [Concomitant]
     Active Substance: ACETAMINOPHEN
     Dosage: 1 TO 2 UP TO 4 TIMES DAILY
     Dates: start: 20170629
  10. CENTRUM [Concomitant]
     Active Substance: VITAMINS
     Dates: start: 20171205
  11. GAVISCON ADVANCE [Concomitant]
     Active Substance: POTASSIUM BICARBONATE\SODIUM ALGINATE
     Dosage: 5ML - 10ML 4 TIMES/DAY
     Dates: start: 20171023, end: 20171107
  12. MIRTAZAPINE. [Concomitant]
     Active Substance: MIRTAZAPINE
     Dosage: AT NIGHT
     Dates: start: 20170731
  13. METFORMIN [Concomitant]
     Active Substance: METFORMIN HYDROCHLORIDE
     Dates: start: 20170731
  14. CETRABEN EMOLLIENT CREAM [Concomitant]
     Dosage: USE AS DIRECTED
     Dates: start: 20170912, end: 20170926

REACTIONS (3)
  - Lip swelling [Recovered/Resolved]
  - Dyspnoea [Recovered/Resolved]
  - Muscle spasms [Recovered/Resolved]

NARRATIVE: CASE EVENT DATE: 20171205
